FAERS Safety Report 7735089-5 (Version None)
Quarter: 2011Q3

REPORT INFORMATION
  Report Type: 
  Country: None (occurrence: None)
  Receive Date: 20110907
  Receipt Date: 20110829
  Transmission Date: 20111222
  Serious: Yes (Other)
  Sender: FDA-Public Use
  Company Number: US-ELI_LILLY_AND_COMPANY-US201107006856

PATIENT
  Age: 59 Year
  Sex: Male
  Weight: 81.633 kg

DRUGS (14)
  1. PLAVIX [Concomitant]
     Dosage: 75 MG, QD
     Route: 048
  2. WELLBUTRIN SR [Concomitant]
     Dosage: 200 MG, QD
     Route: 048
  3. NIASPAN [Concomitant]
     Dosage: 1000 MG, QD
     Route: 048
  4. AXIRON [Suspect]
     Indication: HYPOGONADISM MALE
     Dosage: UNK, ONE PUMP PER AXILLA QD
     Route: 062
     Dates: start: 20110623
  5. KLONOPIN [Concomitant]
     Indication: DEPRESSION
     Dosage: 0.5 MG, BID
     Route: 048
  6. ATENOLOL [Concomitant]
     Dosage: 12.5 MG, QD
     Route: 048
  7. LIPITOR [Concomitant]
     Dosage: 20 MG, EVERY OTHER DAY
     Route: 048
  8. REQUIP [Concomitant]
     Dosage: 0.25 MG, AT BED TIME
     Route: 048
  9. CALTRATE +D [Concomitant]
     Dosage: UNK
     Route: 048
  10. UROXATRAL [Concomitant]
     Dosage: 10 MG, QD
     Route: 065
     Dates: start: 20110623
  11. ZANTAC [Concomitant]
     Dosage: 150 MG, QD
     Route: 048
  12. ASPIRIN [Concomitant]
     Dosage: 81 MG, QD
     Route: 048
  13. LIPITOR [Concomitant]
     Dosage: 40 MG, EVERY OTHER DAY
     Route: 048
  14. FISH OIL [Concomitant]
     Dosage: 1000 MG, QD
     Route: 048

REACTIONS (8)
  - SUICIDE ATTEMPT [None]
  - PARANOIA [None]
  - ANXIETY [None]
  - ANGER [None]
  - AGGRESSION [None]
  - MOOD SWINGS [None]
  - DELUSION [None]
  - DEPRESSION [None]
